FAERS Safety Report 8434636-8 (Version None)
Quarter: 2012Q2

REPORT INFORMATION
  Report Type: 
  Country: None (occurrence: None)
  Receive Date: 20120614
  Receipt Date: 20120602
  Transmission Date: 20120825
  Serious: Yes (Hospitalization, Other)
  Sender: FDA-Public Use
  Company Number: US-PAR PHARMACEUTICAL, INC-2012SCPR004442

PATIENT

DRUGS (3)
  1. LIPID EMULSION [Suspect]
     Indication: SHOCK
     Dosage: BOLUS (X 2) + INFUSION
     Route: 042
  2. VERAPAMIL [Suspect]
     Indication: PRODUCT USED FOR UNKNOWN INDICATION
     Dosage: UNK, UNKNOWN
     Route: 065
  3. AMOXAPINE [Suspect]
     Indication: PRODUCT USED FOR UNKNOWN INDICATION
     Dosage: UNK, UNKNOWN
     Route: 065

REACTIONS (14)
  - DECUBITUS ULCER [None]
  - DEEP VEIN THROMBOSIS [None]
  - RENAL FAILURE ACUTE [None]
  - MULTIPLE DRUG OVERDOSE [None]
  - TOXICITY TO VARIOUS AGENTS [None]
  - CARDIOTOXICITY [None]
  - SHOCK [None]
  - HYPERLIPIDAEMIA [None]
  - ACUTE LUNG INJURY [None]
  - ASTHENIA [None]
  - ATRIAL FIBRILLATION [None]
  - RESPIRATORY FAILURE [None]
  - TOE AMPUTATION [None]
  - SEPSIS [None]
